FAERS Safety Report 19983945 (Version 1)
Quarter: 2021Q4

REPORT INFORMATION
  Report Type: Spontaneous
  Country: US (occurrence: US)
  Receive Date: 20211021
  Receipt Date: 20211021
  Transmission Date: 20220303
  Serious: No
  Sender: FDA-Public Use
  Company Number: US-GE HEALTHCARE LIFE SCIENCES-2021CSU004505

PATIENT
  Sex: Male
  Weight: 75.74 kg

DRUGS (3)
  1. OMNIPAQUE [Suspect]
     Active Substance: IOHEXOL
     Indication: Angiogram
     Dosage: 100 ML, SINGLE
     Route: 042
     Dates: start: 20210811, end: 20210811
  2. OMNIPAQUE [Suspect]
     Active Substance: IOHEXOL
     Indication: Cerebrovascular accident
  3. OMNIPAQUE [Suspect]
     Active Substance: IOHEXOL
     Indication: Hypoaesthesia

REACTIONS (1)
  - Contrast media reaction [Recovered/Resolved]

NARRATIVE: CASE EVENT DATE: 20210811
